FAERS Safety Report 4307011-5 (Version None)
Quarter: 2004Q1

REPORT INFORMATION
  Report Type: 
  Country: None (occurrence: None)
  Receive Date: 20040225
  Receipt Date: 20040210
  Transmission Date: 20041129
  Serious: Yes (Hospitalization)
  Sender: FDA-Public Use
  Company Number: 235310

PATIENT
  Age: 32 Year
  Sex: Male
  Weight: 81 kg

DRUGS (1)
  1. NORDITROPIN [Suspect]
     Indication: GROWTH HORMONE DEFICIENCY
     Dosage: 0.1 MG, QD, SUBCUTANEOUS
     Route: 058
     Dates: start: 20030403, end: 20040101

REACTIONS (1)
  - MENINGIOMA [None]
